FAERS Safety Report 8888105 (Version 1)
Quarter: 2012Q4

REPORT INFORMATION
  Report Type: 
  Country: US (occurrence: US)
  Receive Date: 20121106
  Receipt Date: 20121106
  Transmission Date: 20130627
  Serious: Yes (Hospitalization, Other)
  Sender: FDA-Public Use
  Company Number: US-PFIZER INC-2012276223

PATIENT
  Sex: Female

DRUGS (1)
  1. CHANTIX [Suspect]
     Dosage: UNK
     Dates: start: 200610, end: 200710

REACTIONS (11)
  - Intentional overdose [Unknown]
  - Suicide attempt [Unknown]
  - Myocardial infarction [Unknown]
  - Dyspnoea [Unknown]
  - Palpitations [Unknown]
  - Pain [Unknown]
  - Abdominal pain upper [Unknown]
  - Headache [Unknown]
  - Viral infection [Unknown]
  - Personality change [Unknown]
  - Fatigue [Unknown]
